FAERS Safety Report 7296932-X (Version None)
Quarter: 2011Q1

REPORT INFORMATION
  Report Type: 
  Country: None (occurrence: None)
  Receive Date: 20110216
  Receipt Date: 20110209
  Transmission Date: 20110831
  Serious: Yes (Hospitalization)
  Sender: FDA-Public Use
  Company Number: US-JNJFOC-20100300612

PATIENT
  Sex: Male
  Weight: 54.89 kg

DRUGS (12)
  1. IRON [Concomitant]
  2. PREDNISONE [Concomitant]
  3. 5-AMINOSALICYLIC ACID [Concomitant]
     Route: 048
  4. PRILOSEC [Concomitant]
  5. INFLIXIMAB [Suspect]
     Indication: CROHN'S DISEASE
     Dosage: STARTED INFLIXIMAB IN THE FALL OF 2008
     Route: 042
  6. INFLIXIMAB [Suspect]
     Route: 042
  7. MULTI-VITAMINS [Concomitant]
  8. CALCIUM [Concomitant]
  9. INFLIXIMAB [Suspect]
     Route: 042
  10. COLAZAL [Concomitant]
     Dosage: WEANED DOWN FROM TID
  11. ACIDOPHILUS [Concomitant]
  12. MERCAPTOPURINE [Concomitant]

REACTIONS (2)
  - PERIRECTAL ABSCESS [None]
  - CROHN'S DISEASE [None]
